FAERS Safety Report 7715033-7 (Version None)
Quarter: 2011Q3

REPORT INFORMATION
  Report Type: 
  Country: None (occurrence: None)
  Receive Date: 20110829
  Receipt Date: 20110707
  Transmission Date: 20111222
  Serious: No
  Sender: FDA-Public Use
  Company Number: US-ASTRAZENECA-2011SE40600

PATIENT
  Age: 57 Year
  Sex: Female

DRUGS (6)
  1. VITAMINS D AND E [Concomitant]
  2. ZETIA [Concomitant]
  3. CALCIUM CARBONATE [Concomitant]
  4. ASPIRIN [Concomitant]
  5. VIMOVO [Suspect]
     Dosage: 500MG/20MG BID
     Route: 048
     Dates: start: 20110427
  6. MULTI-VITAMIN [Concomitant]

REACTIONS (3)
  - THERMAL BURN [None]
  - DYSPEPSIA [None]
  - BLISTER [None]
